FAERS Safety Report 6682941-8 (Version None)
Quarter: 2010Q2

REPORT INFORMATION
  Report Type: 
  Country: None (occurrence: None)
  Receive Date: 20100413
  Receipt Date: 20100330
  Transmission Date: 20101027
  Serious: Yes (Hospitalization)
  Sender: FDA-Public Use
  Company Number: A-US2010-35293

PATIENT
  Age: 82 Year
  Sex: Female

DRUGS (3)
  1. TRACLEER [Suspect]
     Indication: HYPERTENSION
     Dosage: ORAL
     Route: 048
     Dates: start: 20080612
  2. CALCIUM CHANNEL BLOCKERS [Concomitant]
  3. REVATIO [Concomitant]

REACTIONS (1)
  - PULMONARY OEDEMA [None]
